FAERS Safety Report 9675089 (Version 1)
Quarter: 2013Q4

REPORT INFORMATION
  Report Type: Spontaneous
  Country: US (occurrence: None)
  Receive Date: 20131106
  Receipt Date: 20131106
  Transmission Date: 20140711
  Serious: No
  Sender: FDA-Public Use
  Company Number: None

PATIENT
  Age: 26 None
  Sex: Female

DRUGS (2)
  1. CIMZIA [Suspect]
     Indication: CROHN^S DISEASE
     Dosage: 2 SYRINGS (400 MG) EVERY 4 WEEKS SC
     Route: 058
  2. CIMZIA [Suspect]
     Indication: CROHN^S DISEASE
     Dosage: 2 SYRINGS (400 MG) EVERY 4 WEEKS SC
     Route: 058

REACTIONS (3)
  - Crohn^s disease [None]
  - Incorrect product storage [None]
  - Poor quality drug administered [None]
